FAERS Safety Report 7647653-2 (Version None)
Quarter: 2011Q3

REPORT INFORMATION
  Report Type: 
  Country: None (occurrence: None)
  Receive Date: 20110801
  Receipt Date: 20110801
  Transmission Date: 20111222
  Serious: Yes (Other)
  Sender: FDA-Public Use
  Company Number: None

PATIENT
  Age: 36 Year
  Sex: Female
  Weight: 74.842 kg

DRUGS (1)
  1. LEVAQUIN [Suspect]
     Indication: BARTONELLOSIS
     Dosage: 500 MG
     Route: 048
     Dates: start: 20110620, end: 20110626

REACTIONS (4)
  - ASTHENIA [None]
  - PRURITUS GENERALISED [None]
  - TENDON PAIN [None]
  - PARAESTHESIA [None]
